FAERS Safety Report 15246618 (Version 1)
Quarter: 2018Q3

REPORT INFORMATION
  Report Type: Spontaneous
  Country: US (occurrence: US)
  Receive Date: 20180713
  Receipt Date: 20180713
  Transmission Date: 20181010
  Serious: Yes (Life-Threatening, Hospitalization, Disabling)
  Sender: FDA-Public Use
  Company Number: None

PATIENT
  Age: 49 Year
  Sex: Female
  Weight: 66.15 kg

DRUGS (1)
  1. MARCAINE [Suspect]
     Active Substance: BUPIVACAINE HYDROCHLORIDE
     Indication: MUSCULOSKELETAL PAIN
     Dosage: ?          QUANTITY:1 INJECTION(S);OTHER FREQUENCY:MONTHLY;?
     Route: 030
     Dates: start: 20170720, end: 20170720

REACTIONS (10)
  - Pain in extremity [None]
  - Impaired work ability [None]
  - Myocardial infarction [None]
  - Neck pain [None]
  - Loss of consciousness [None]
  - Feeling hot [None]
  - Limb discomfort [None]
  - Dystonia [None]
  - Serotonin syndrome [None]
  - Neuroleptic malignant syndrome [None]

NARRATIVE: CASE EVENT DATE: 20170723
